FAERS Safety Report 4498665-1 (Version None)
Quarter: 2004Q3

REPORT INFORMATION
  Report Type: 
  Country: None (occurrence: None)
  Receive Date: 20040927
  Receipt Date: 20040618
  Transmission Date: 20050211
  Serious: No
  Sender: FDA-Public Use
  Company Number: USA040670646

PATIENT
  Age: 32 Year
  Sex: Female
  Weight: 57 kg

DRUGS (4)
  1. STRATTERA [Suspect]
     Indication: ATTENTION DEFICIT/HYPERACTIVITY DISORDER
     Dosage: 40 MG/ 1 DAY
     Dates: start: 20040618
  2. DIGOXIN [Concomitant]
  3. DIOVAN [Concomitant]
  4. CLARINEX [Concomitant]

REACTIONS (3)
  - DEFAECATION URGENCY [None]
  - FEELING HOT [None]
  - VOMITING [None]
